FAERS Safety Report 19480257 (Version 1)
Quarter: 2021Q3

REPORT INFORMATION
  Report Type: Spontaneous
  Country: GB (occurrence: GB)
  Receive Date: 20210701
  Receipt Date: 20210701
  Transmission Date: 20211014
  Serious: Yes (Other)
  Sender: FDA-Public Use
  Company Number: GB-SUN PHARMACEUTICAL INDUSTRIES LTD-2021RR-302495

PATIENT
  Age: 55 Year
  Sex: Female

DRUGS (1)
  1. OCTREOTIDE. [Suspect]
     Active Substance: OCTREOTIDE
     Indication: METASTASIS
     Dosage: UNK
     Route: 042

REACTIONS (3)
  - Disease progression [Unknown]
  - Headache [Unknown]
  - Nausea [Unknown]
